FAERS Safety Report 12405645 (Version 1)
Quarter: 2016Q2

REPORT INFORMATION
  Report Type: Spontaneous
  Country: US (occurrence: None)
  Receive Date: 20160525
  Receipt Date: 20160525
  Transmission Date: 20160815
  Serious: Yes (Life-Threatening, Hospitalization, Disabling)
  Sender: FDA-Public Use
  Company Number: None

PATIENT
  Age: 66 Year
  Sex: Female
  Weight: 54.43 kg

DRUGS (10)
  1. CIPRO [Suspect]
     Active Substance: CIPROFLOXACIN HYDROCHLORIDE
     Indication: URINARY TRACT INFECTION
     Route: 048
  2. METFORMIN [Concomitant]
     Active Substance: METFORMIN HYDROCHLORIDE
  3. STATIN [Concomitant]
     Active Substance: UNSPECIFIED INGREDIENT
  4. PROTANDIM [Concomitant]
     Active Substance: DIETARY SUPPLEMENT
  5. PLAVIX [Concomitant]
     Active Substance: CLOPIDOGREL BISULFATE
  6. ESTROVENMAGNESIUM [Concomitant]
  7. ASPIRIN. [Concomitant]
     Active Substance: ASPIRIN
  8. MAGNESIUM [Concomitant]
     Active Substance: MAGNESIUM
  9. ESTRACE [Concomitant]
     Active Substance: ESTRADIOL
  10. METOPROLOL. [Concomitant]
     Active Substance: METOPROLOL

REACTIONS (16)
  - Stress cardiomyopathy [None]
  - Activities of daily living impaired [None]
  - Chest pain [None]
  - Syncope [None]
  - Seizure [None]
  - Pain [None]
  - Nausea [None]
  - Arrhythmia [None]
  - Troponin increased [None]
  - Asthenia [None]
  - Myalgia [None]
  - Acute myocardial infarction [None]
  - Arthralgia [None]
  - Tendon pain [None]
  - Neck pain [None]
  - Muscle spasms [None]

NARRATIVE: CASE EVENT DATE: 20150831
